FAERS Safety Report 6529357-2 (Version None)
Quarter: 2010Q1

REPORT INFORMATION
  Report Type: 
  Country: None (occurrence: None)
  Receive Date: 20100107
  Receipt Date: 20091228
  Transmission Date: 20100710
  Serious: No
  Sender: FDA-Public Use
  Company Number: US-JNJFOC-20091207481

PATIENT
  Sex: Female
  Weight: 88.45 kg

DRUGS (2)
  1. FENTANYL [Suspect]
     Indication: BACK PAIN
     Route: 062
  2. MULTIPLE MEDICATIONS UNSPECIFIED [Concomitant]
     Route: 065

REACTIONS (1)
  - WRONG TECHNIQUE IN DRUG USAGE PROCESS [None]
